FAERS Safety Report 5821174-1 (Version None)
Quarter: 2008Q3

REPORT INFORMATION
  Report Type: 
  Country: None (occurrence: None)
  Receive Date: 20080721
  Receipt Date: 20080708
  Transmission Date: 20090109
  Serious: Yes (Hospitalization)
  Sender: FDA-Public Use
  Company Number: 235218J08USA

PATIENT
  Age: 49 Year
  Sex: Female
  Weight: 50.3493 kg

DRUGS (8)
  1. REBIF [Suspect]
     Indication: MULTIPLE SCLEROSIS
     Dosage: 44 MCG, 3 IN 1 WEEKS, SUBCUTANEOUS
     Route: 058
     Dates: start: 20050721
  2. LEVOTHYROXINE (LEVOTHYROXINE /00068001/) [Concomitant]
  3. ESTRADIOL (ESTRADIOL /00045401/) [Concomitant]
  4. VYTORIN [Concomitant]
  5. LORTAB [Concomitant]
  6. SOMA [Concomitant]
  7. FENTANYL [Concomitant]
  8. DEPAKOTE [Concomitant]

REACTIONS (7)
  - FACIAL BONES FRACTURE [None]
  - GRAND MAL CONVULSION [None]
  - LYMPHADENOPATHY [None]
  - MASS [None]
  - POST PROCEDURAL COMPLICATION [None]
  - PROCEDURAL SITE REACTION [None]
  - SINUSITIS [None]
